FAERS Safety Report 21367729 (Version 3)
Quarter: 2022Q4

REPORT INFORMATION
  Report Type: Report from Study
  Country: US (occurrence: US)
  Receive Date: 20220923
  Receipt Date: 20221028
  Transmission Date: 20230112
  Serious: Yes (Hospitalization, Other)
  Sender: FDA-Public Use
  Company Number: US-AUROBINDO-AUR-APL-2022-037332

PATIENT
  Age: 76 Year
  Sex: Female
  Weight: 66.4 kg

DRUGS (4)
  1. BELEODAQ [Suspect]
     Active Substance: BELINOSTAT
     Indication: Ovarian cancer
     Dosage: 1000 MILLIGRAM/SQ. METER (D1-5, 21 DAY CYCLE)
     Route: 042
     Dates: start: 20220509, end: 20220912
  2. ELIQUIS [Concomitant]
     Active Substance: APIXABAN
     Indication: Anticoagulant therapy
     Dosage: 2 DOSAGE FORM (10 MG) TWO TIMES A DAY
     Route: 048
  3. ELIQUIS [Concomitant]
     Active Substance: APIXABAN
     Dosage: 1 DOSAGE FORM, 1 DOSAGE FORM, (5 MILLIGRAM) TWO TIMES A DAY
     Route: 048
  4. TALAZOPARIB [Suspect]
     Active Substance: TALAZOPARIB
     Indication: Ovarian cancer
     Dosage: 1 MILLIGRAM, ONCE A DAY
     Route: 048
     Dates: start: 20220905, end: 20220912

REACTIONS (2)
  - Embolism [Not Recovered/Not Resolved]
  - Disease progression [Unknown]

NARRATIVE: CASE EVENT DATE: 20220909
